FAERS Safety Report 25535765 (Version 1)
Quarter: 2025Q3

REPORT INFORMATION
  Report Type: Spontaneous
  Country: US (occurrence: US)
  Receive Date: 20250709
  Receipt Date: 20250709
  Transmission Date: 20251021
  Serious: No
  Sender: VIRTUS PHARMACEUTICALS
  Company Number: US-ACERTIS PHARMACEUTICALS, LLC-2025VTS00002

PATIENT
  Sex: Female

DRUGS (1)
  1. PROGESTERONE [Suspect]
     Active Substance: PROGESTERONE

REACTIONS (1)
  - Drug ineffective [Unknown]
